FAERS Safety Report 24636314 (Version 1)
Quarter: 2024Q4

REPORT INFORMATION
  Report Type: Spontaneous
  Country: US (occurrence: US)
  Receive Date: 20241119
  Receipt Date: 20241119
  Transmission Date: 20250114
  Serious: Yes (Other)
  Sender: MACLEODS
  Company Number: US-MLMSERVICE-20241111-PI248783-00117-4

PATIENT

DRUGS (4)
  1. OLANZAPINE [Suspect]
     Active Substance: OLANZAPINE
     Indication: Affective disorder
     Dosage: ONE-HALF OF THE SMALLEST TABLET AVAILABLE
     Route: 065
  2. OLANZAPINE [Suspect]
     Active Substance: OLANZAPINE
     Dosage: GRADUALLY TITRATED
     Route: 065
  3. OLANZAPINE [Suspect]
     Active Substance: OLANZAPINE
     Dosage: PULSE DOSAGE WAS INCREASED TO 5 MG TWICE DAILY
     Route: 065
  4. DEXAMETHASONE [Suspect]
     Active Substance: DEXAMETHASONE
     Indication: Acute lymphocytic leukaemia
     Dosage: MONTHLY, WEEK-LONG PULSES
     Route: 065

REACTIONS (2)
  - Depressive symptom [Recovering/Resolving]
  - Intentional self-injury [Recovered/Resolved]
